FAERS Safety Report 6970313-8 (Version None)
Quarter: 2010Q3

REPORT INFORMATION
  Report Type: 
  Country: None (occurrence: None)
  Receive Date: 20100908
  Receipt Date: 20100827
  Transmission Date: 20110219
  Serious: Yes (Death)
  Sender: FDA-Public Use
  Company Number: JP-BAYER-200913786BYL

PATIENT

DRUGS (5)
  1. FLUDARA [Suspect]
     Indication: NEUROBLASTOMA
     Route: 065
  2. BUSULFAN [Suspect]
     Indication: NEUROBLASTOMA
     Route: 042
  3. MELPHALAN [Concomitant]
     Indication: NEUROBLASTOMA
     Route: 065
  4. TACROLIMUS [Concomitant]
     Indication: PROPHYLAXIS AGAINST GRAFT VERSUS HOST DISEASE
     Route: 065
  5. METHOTREXATE [Concomitant]
     Indication: PROPHYLAXIS AGAINST GRAFT VERSUS HOST DISEASE
     Route: 065

REACTIONS (2)
  - PULMONARY HAEMORRHAGE [None]
  - THROMBOTIC THROMBOCYTOPENIC PURPURA [None]
